FAERS Safety Report 19920476 (Version 2)
Quarter: 2022Q1

REPORT INFORMATION
  Report Type: Report from Study
  Country: US (occurrence: None)
  Receive Date: 20211005
  Receipt Date: 20220128
  Transmission Date: 20220424
  Serious: Yes (Hospitalization)
  Sender: FDA-Public Use
  Company Number: US-ROCHE-2923796

PATIENT
  Age: 70 Year
  Sex: Female
  Weight: 100.9 kg

DRUGS (2)
  1. OBINUTUZUMAB [Suspect]
     Active Substance: OBINUTUZUMAB
     Indication: Chronic lymphocytic leukaemia
     Dosage: LAST ADMINISTERED ON 07-SEP-2021
     Route: 042
     Dates: start: 20210907
  2. IBRUTINIB [Suspect]
     Active Substance: IBRUTINIB
     Indication: Chronic lymphocytic leukaemia
     Dosage: LAST ADMINISTERED ON 07/SEP/2021
     Route: 065
     Dates: start: 20210907

REACTIONS (2)
  - Hyperkalaemia [Recovered/Resolved]
  - Hyperphosphataemia [Recovered/Resolved]

NARRATIVE: CASE EVENT DATE: 20210908
